FAERS Safety Report 6883557-0 (Version None)
Quarter: 2010Q3

REPORT INFORMATION
  Report Type: 
  Country: None (occurrence: None)
  Receive Date: 20100729
  Receipt Date: 20100722
  Transmission Date: 20110219
  Serious: Yes (Other)
  Sender: FDA-Public Use
  Company Number: US-BAYER-201028765NA

PATIENT
  Age: 58 Year
  Sex: Male
  Weight: 64 kg

DRUGS (4)
  1. ULTRAVIST 300 [Suspect]
     Indication: COMPUTERISED TOMOGRAM THORAX
     Dosage: AS USED: 100 ML
     Route: 042
     Dates: start: 20100722, end: 20100722
  2. CLARITIN [Concomitant]
  3. LIPITOR [Concomitant]
  4. ZOLOFT [Concomitant]

REACTIONS (6)
  - CHEST DISCOMFORT [None]
  - NASAL CONGESTION [None]
  - NAUSEA [None]
  - PRURITUS [None]
  - SNEEZING [None]
  - WHEEZING [None]
